FAERS Safety Report 4699640-4 (Version None)
Quarter: 2005Q2

REPORT INFORMATION
  Report Type: 
  Country: None (occurrence: None)
  Receive Date: 20050624
  Receipt Date: 20050615
  Transmission Date: 20051028
  Serious: Yes (Other)
  Sender: FDA-Public Use
  Company Number: US-BRISTOL-MYERS SQUIBB COMPANY-13011713

PATIENT
  Age: 73 Year
  Sex: Female

DRUGS (3)
  1. SINEMET [Suspect]
     Route: 048
     Dates: start: 20041107, end: 20041202
  2. SYNTHROID [Concomitant]
  3. OXYBUTYNIN [Concomitant]

REACTIONS (2)
  - CONDITION AGGRAVATED [None]
  - TREMOR [None]
